FAERS Safety Report 18839172 (Version 2)
Quarter: 2021Q1

REPORT INFORMATION
  Report Type: Report from Study
  Country: CA (occurrence: CA)
  Receive Date: 20210203
  Receipt Date: 20210223
  Transmission Date: 20210419
  Serious: Yes (Other)
  Sender: FDA-Public Use
  Company Number: CA-TAKEDA-2021TUS005339

PATIENT
  Age: 37 Year
  Sex: Female

DRUGS (3)
  1. PENTASA [Concomitant]
     Active Substance: MESALAMINE
     Dosage: UNK
     Dates: start: 202007
  2. CORTINA [HYDROCORTISONE ACETATE] [Concomitant]
     Dosage: UNK
     Dates: start: 20200713
  3. VEDOLIZUMAB [Suspect]
     Active Substance: VEDOLIZUMAB
     Indication: COLITIS ULCERATIVE
     Dosage: 300 MILLIGRAM
     Route: 042
     Dates: start: 20200716

REACTIONS (4)
  - Hyperthyroidism [Unknown]
  - Urticaria [Unknown]
  - Headache [Recovered/Resolved]
  - Sensitive skin [Unknown]

NARRATIVE: CASE EVENT DATE: 202010
